FAERS Safety Report 12083414 (Version 1)
Quarter: 2016Q1

REPORT INFORMATION
  Report Type: Spontaneous
  Country: US (occurrence: None)
  Receive Date: 20160216
  Receipt Date: 20160216
  Transmission Date: 20160526
  Serious: No
  Sender: FDA-Public Use
  Company Number: None

PATIENT
  Sex: Male

DRUGS (5)
  1. JANUMET [Concomitant]
     Active Substance: METFORMIN HYDROCHLORIDE\SITAGLIPTIN PHOSPHATE
  2. CAPECITABINE 500 MG TEVA [Suspect]
     Active Substance: CAPECITABINE
     Indication: NEOPLASM MALIGNANT
     Dosage: Q12HOURS
     Route: 048
     Dates: start: 20151202
  3. METAMUCIL [Concomitant]
     Active Substance: PLANTAGO SEED
  4. ONDANSETRON [Concomitant]
     Active Substance: ONDANSETRON
  5. GABAPENTIN. [Concomitant]
     Active Substance: GABAPENTIN

REACTIONS (5)
  - Dizziness [None]
  - Nausea [None]
  - Abdominal pain upper [None]
  - Vomiting [None]
  - Gastrointestinal disorder [None]

NARRATIVE: CASE EVENT DATE: 2016
